FAERS Safety Report 4584931-8 (Version None)
Quarter: 2005Q1

REPORT INFORMATION
  Report Type: 
  Country: None (occurrence: None)
  Receive Date: 20050217
  Receipt Date: 20041115
  Transmission Date: 20050727
  Serious: Yes (Other)
  Sender: FDA-Public Use
  Company Number: US-GLAXOSMITHKLINE-A0533967A

PATIENT
  Age: 19 Year
  Sex: Female
  Weight: 54.5 kg

DRUGS (4)
  1. WELLBUTRIN XL [Suspect]
     Route: 048
  2. DEPAKOTE [Suspect]
     Indication: DRUG USE FOR UNKNOWN INDICATION
     Dosage: 500MG TWICE PER DAY
     Route: 048
  3. PHENERGAN [Concomitant]
     Route: 048
  4. REGLAN [Concomitant]
     Route: 048

REACTIONS (1)
  - GRAND MAL CONVULSION [None]
